FAERS Safety Report 16963328 (Version 15)
Quarter: 2023Q2

REPORT INFORMATION
  Report Type: Spontaneous
  Country: DE (occurrence: DE)
  Receive Date: 20191025
  Receipt Date: 20230430
  Transmission Date: 20230721
  Serious: Yes (Death, Life-Threatening, Hospitalization, Other)
  Sender: FDA-Public Use
  Company Number: NVSC2019DE016384

PATIENT
  Age: 60 Year
  Sex: Male

DRUGS (22)
  1. RITUXIMAB [Suspect]
     Active Substance: RITUXIMAB
     Indication: Encephalitis autoimmune
     Dosage: 1 G (BETWEEN 2 AND 3 MONTHS AFTER DISEASE EXACERBATION)
     Route: 065
  2. RITUXIMAB [Suspect]
     Active Substance: RITUXIMAB
     Indication: Plasma cell myeloma
     Dosage: 1 G (7 MONTHS AFTER DISEASE EXACERBATION)
     Route: 065
  3. RITUXIMAB [Suspect]
     Active Substance: RITUXIMAB
     Indication: Immunosuppressant drug therapy
     Dosage: 1 G (4 MONTHS AFTER DISEASE EXACERBATION)
     Route: 065
  4. RITUXIMAB [Suspect]
     Active Substance: RITUXIMAB
     Indication: Encephalitis autoimmune
     Dosage: 1 G (12 MONTHS AFTER DISEASE EXACERBATION)
     Route: 065
  5. RITUXIMAB [Suspect]
     Active Substance: RITUXIMAB
     Indication: Immunosuppression
     Dosage: 1 G (7 MONTHS AFTER DISEASE EXACERBATION)
     Route: 065
  6. RITUXIMAB [Suspect]
     Active Substance: RITUXIMAB
     Dosage: 1 G (12 MONTHS AFTER DISEASE EXACERBATION)
     Route: 065
  7. RITUXIMAB [Suspect]
     Active Substance: RITUXIMAB
     Dosage: 1 G (4 MONTHS AFTER DISEASE EXACERBATION)
     Route: 065
  8. RITUXIMAB [Suspect]
     Active Substance: RITUXIMAB
     Dosage: 1 G (BETWEEN 2 AND 3 MONTHS AFTER DISEASE EXACERBATION)
     Route: 065
  9. METHYLPREDNISOLONE [Suspect]
     Active Substance: METHYLPREDNISOLONE
     Indication: Encephalitis autoimmune
     Dosage: 5 X 1 G
     Route: 065
  10. METHYLPREDNISOLONE [Suspect]
     Active Substance: METHYLPREDNISOLONE
     Indication: Immunosuppressant drug therapy
     Dosage: 5 X 500MG
     Route: 065
  11. METHYLPREDNISOLONE [Suspect]
     Active Substance: METHYLPREDNISOLONE
     Indication: Immunosuppression
     Dosage: 5X500MG
     Route: 065
  12. METHYLPREDNISOLONE [Suspect]
     Active Substance: METHYLPREDNISOLONE
     Indication: Encephalitis autoimmune
     Dosage: 5X1G
     Route: 065
  13. PREDNISOLONE [Suspect]
     Active Substance: PREDNISOLONE
     Indication: Encephalitis autoimmune
     Dosage: TAPERING-REGIMEN; 5 MG QD
     Route: 048
  14. PREDNISOLONE [Suspect]
     Active Substance: PREDNISOLONE
     Indication: Encephalitis
     Dosage: RECEIVED FOR 2 AND HALF YEARS, TAPERING-REGIMEN ADMINISTERED
     Route: 048
  15. PREDNISOLONE [Suspect]
     Active Substance: PREDNISOLONE
     Dosage: TAPERING-REGIMEN
     Route: 048
  16. VELCADE [Suspect]
     Active Substance: BORTEZOMIB
     Indication: Encephalitis autoimmune
     Dosage: THREE CYCLES AT A DOSE OF 1-1.3 MG/M2
     Route: 065
  17. VELCADE [Suspect]
     Active Substance: BORTEZOMIB
     Indication: Immunosuppressant drug therapy
     Dosage: 11.3 MG/M2 (3 CYCLES OF BORTEZOMIB 11.3 MG/M2)
     Route: 065
  18. DARZALEX [Suspect]
     Active Substance: DARATUMUMAB
     Indication: Encephalitis autoimmune
     Dosage: 16 MG/KG QW (1-8 CYCLES)
     Route: 042
  19. DARZALEX [Suspect]
     Active Substance: DARATUMUMAB
     Indication: Plasma cell myeloma
     Dosage: 16 MG/KG, Q2W (9-13 CYCLES)
     Route: 042
  20. DARZALEX [Suspect]
     Active Substance: DARATUMUMAB
     Indication: Immunosuppressant drug therapy
     Dosage: 16 MG/KG, BIW (REMAINING FIVE CYCLES)
     Route: 065
  21. ACYCLOVIR [Concomitant]
     Active Substance: ACYCLOVIR
     Indication: Infection prophylaxis
     Dosage: 200 MILLIGRAM DAILY;
     Route: 065
  22. COTRIMOXAZOLE [Concomitant]
     Active Substance: SULFAMETHOXAZOLE\TRIMETHOPRIM
     Indication: Infection prophylaxis
     Dosage: 960 MG, THREE TIMES A WEEK (2880MG, 1 WEEK)
     Route: 065

REACTIONS (21)
  - Septic shock [Fatal]
  - Urinary tract infection [Fatal]
  - Cellulitis [Fatal]
  - Encephalitis [Fatal]
  - Condition aggravated [Fatal]
  - Breathing-related sleep disorder [Fatal]
  - Cognitive disorder [Fatal]
  - Encephalitis autoimmune [Fatal]
  - Infection [Fatal]
  - Neuromyotonia [Fatal]
  - Hand fracture [Fatal]
  - Bacterial sepsis [Fatal]
  - Aggression [Fatal]
  - Seizure [Fatal]
  - Cerebellar ataxia [Fatal]
  - Bacterial infection [Fatal]
  - Rebound effect [Fatal]
  - Therapeutic response unexpected [Fatal]
  - Product use in unapproved indication [Fatal]
  - Drug ineffective [Fatal]
  - Therapy non-responder [Unknown]

NARRATIVE: CASE EVENT DATE: 20170101
